FAERS Safety Report 21140351 (Version 1)
Quarter: 2022Q3

REPORT INFORMATION
  Report Type: Spontaneous
  Country: EG (occurrence: EG)
  Receive Date: 20220728
  Receipt Date: 20220728
  Transmission Date: 20221026
  Serious: Yes (Other)
  Sender: FDA-Public Use
  Company Number: EG-NOVOPROD-941239

PATIENT
  Age: 38 Year
  Sex: Female

DRUGS (6)
  1. NOVORAPID [Suspect]
     Active Substance: INSULIN ASPART
     Indication: Type 2 diabetes mellitus
     Dosage: 85 IU, QD (25 U IN MORNING,35 U IN AFTERNOON AND 25 U AT NIGHT)
     Route: 058
     Dates: start: 202108, end: 202208
  2. LANTUS [Concomitant]
     Active Substance: INSULIN GLARGINE
     Indication: Type 2 diabetes mellitus
     Dosage: 32 IU, QD (AT NIGHT)
     Dates: start: 2018
  3. FISH OIL\TOCOPHEROL [Concomitant]
     Active Substance: FISH OIL\TOCOPHEROL
     Indication: Vitamin supplementation
     Dosage: ONE TABLET PER DAY
  4. SALICYLIC ACID [Concomitant]
     Active Substance: SALICYLIC ACID
     Indication: Vitamin supplementation
     Dosage: ONE TABLET PER DAY AT NIGHT
  5. FEROGLOBIN B12 [ASCORBIC ACID;CALCIUM GLYCEROPHOSPHATE;COPPER;CYANOCOB [Concomitant]
     Indication: Pregnancy
     Dosage: ONE TABLET PER DAY
  6. ELEVIT [ASCORBIC ACID;BIOTIN;CALCIUM;CALCIUM PANTOTHENATE;COPPER;CYANO [Concomitant]
     Indication: Vitamin supplementation
     Dosage: ONE TABLET PER DAY

REACTIONS (2)
  - Foetal death [Unknown]
  - Maternal exposure during pregnancy [Recovered/Resolved]
